FAERS Safety Report 10751521 (Version 1)
Quarter: 2015Q1

REPORT INFORMATION
  Report Type: Report from Study
  Country: US (occurrence: US)
  Receive Date: 20150130
  Receipt Date: 20150130
  Transmission Date: 20150721
  Serious: Yes (Other)
  Sender: FDA-Public Use
  Company Number: US-SA-2014SA081684

PATIENT
  Age: 55 Year
  Sex: Male

DRUGS (4)
  1. VITAMIN B12 [Concomitant]
     Active Substance: CYANOCOBALAMIN
     Dosage: MEGA DOSE
  2. AUBAGIO [Suspect]
     Active Substance: TERIFLUNOMIDE
     Indication: MULTIPLE SCLEROSIS
     Dosage: 14
     Route: 048
     Dates: start: 20140409
  3. VITAMIN E [Concomitant]
     Active Substance: .ALPHA.-TOCOPHEROL
  4. VITAMIN D [Concomitant]
     Active Substance: CHOLECALCIFEROL
     Dosage: 5000

REACTIONS (6)
  - Diarrhoea [Unknown]
  - Micturition urgency [Unknown]
  - Fatigue [Unknown]
  - Urinary retention [Unknown]
  - Memory impairment [Unknown]
  - Unevaluable event [Unknown]

NARRATIVE: CASE EVENT DATE: 2014
